FAERS Safety Report 11292442 (Version 2)
Quarter: 2015Q3

REPORT INFORMATION
  Report Type: Spontaneous
  Country: US (occurrence: US)
  Receive Date: 20150722
  Receipt Date: 20150803
  Transmission Date: 20151125
  Serious: Yes (Hospitalization, Other)
  Sender: FDA-Public Use
  Company Number: US-PFIZER INC-2015238423

PATIENT
  Age: 6 Year
  Sex: Female

DRUGS (1)
  1. PHENYTOIN. [Suspect]
     Active Substance: PHENYTOIN
     Dosage: 200 MG, DAILY

REACTIONS (4)
  - Lymphadenopathy [Recovering/Resolving]
  - Drug-induced liver injury [Recovering/Resolving]
  - Hepatosplenomegaly [Recovering/Resolving]
  - Dermatitis exfoliative [Recovering/Resolving]
